FAERS Safety Report 24944156 (Version 2)
Quarter: 2025Q1

REPORT INFORMATION
  Report Type: Spontaneous
  Country: CA (occurrence: CA)
  Receive Date: 20250207
  Receipt Date: 20250212
  Transmission Date: 20250409
  Serious: Yes (Other)
  Sender: ROCHE
  Company Number: CA-ROCHE-10000199300

PATIENT
  Age: 63 Year
  Sex: Male
  Weight: 100 kg

DRUGS (10)
  1. ACTEMRA [Suspect]
     Active Substance: TOCILIZUMAB
     Indication: Rheumatoid arthritis
     Route: 042
     Dates: start: 20210222
  2. ACTEMRA [Suspect]
     Active Substance: TOCILIZUMAB
     Route: 042
  3. ARTHROTEC [Concomitant]
     Active Substance: DICLOFENAC SODIUM\MISOPROSTOL
     Dosage: 50MG/200
     Route: 048
  4. SYNTHROID [Concomitant]
     Active Substance: LEVOTHYROXINE SODIUM
     Dosage: 125 MCG
     Route: 048
  5. VITAMIN C [Concomitant]
     Active Substance: ASCORBIC ACID
     Dosage: 1 TAB
     Route: 048
  6. CIPRALEX [Concomitant]
     Active Substance: ESCITALOPRAM OXALATE
     Route: 048
  7. ROSUVASTATIN [Concomitant]
     Active Substance: ROSUVASTATIN
     Route: 048
  8. VITAMINS [Concomitant]
     Active Substance: VITAMINS
     Dosage: MULTIVITAMIN ADULT 50+
     Route: 048
  9. VITAMIN D [Concomitant]
     Active Substance: VITAMIN D NOS
     Route: 048
  10. OMEGA 3 [Concomitant]
     Active Substance: CAPSAICIN
     Route: 048

REACTIONS (3)
  - Fall [Unknown]
  - Concussion [Not Recovered/Not Resolved]
  - Skin abrasion [Unknown]

NARRATIVE: CASE EVENT DATE: 20250202
